FAERS Safety Report 5261931-6 (Version None)
Quarter: 2007Q1

REPORT INFORMATION
  Report Type: 
  Country: None (occurrence: None)
  Receive Date: 20070308
  Receipt Date: 20070222
  Transmission Date: 20070707
  Serious: Yes (Hospitalization)
  Sender: FDA-Public Use
  Company Number: MEDI-0005463

PATIENT
  Sex: Female

DRUGS (1)
  1. ETHYOL [Suspect]
     Dosage: SUBCUTANEOUS
     Route: 058
     Dates: end: 20070219

REACTIONS (3)
  - ASTHENIA [None]
  - INJECTION SITE ERYTHEMA [None]
  - RASH GENERALISED [None]
